FAERS Safety Report 8105114 (Version 3)
Quarter: 2013Q1

REPORT INFORMATION
  Report Type: Spontaneous
  Country: US (occurrence: US)
  Receive Date: 20110824
  Receipt Date: 20130307
  Transmission Date: 20140127
  Serious: Yes (Other)
  Sender: FDA-Public Use
  Company Number: US-ASTRAZENECA-2011SE48871

PATIENT
  Age: 66 Year
  Sex: Female
  Weight: 68 kg

DRUGS (8)
  1. SEROQUEL [Suspect]
     Indication: DEPRESSION
     Route: 048
     Dates: start: 2011
  2. SEROQUEL [Suspect]
     Indication: POST-TRAUMATIC STRESS DISORDER
     Route: 048
     Dates: start: 2011
  3. SEROQUEL [Suspect]
     Indication: DEPRESSION
     Route: 048
  4. SEROQUEL [Suspect]
     Indication: POST-TRAUMATIC STRESS DISORDER
     Route: 048
  5. TOPROL [Concomitant]
     Indication: HYPERTENSION
     Route: 048
     Dates: start: 2011, end: 2011
  6. PRISTIQ [Concomitant]
     Indication: DEPRESSION
     Dosage: DAILY
     Route: 048
     Dates: start: 2011, end: 2011
  7. ZANTAC [Concomitant]
     Dosage: AS REQUIRED
  8. VALIUM [Concomitant]
     Dosage: AS REQUIRED

REACTIONS (10)
  - Suicidal ideation [Unknown]
  - Adverse event [Unknown]
  - Post-traumatic stress disorder [Unknown]
  - Depression [Unknown]
  - Memory impairment [Unknown]
  - Dizziness [Unknown]
  - Intentional drug misuse [Unknown]
  - Drug ineffective [Unknown]
  - Drug dose omission [Unknown]
  - Therapeutic response unexpected [Unknown]
